FAERS Safety Report 7041126-6 (Version None)
Quarter: 2010Q4

REPORT INFORMATION
  Report Type: 
  Country: None (occurrence: None)
  Receive Date: 20101013
  Receipt Date: 20101004
  Transmission Date: 20110411
  Serious: Yes (Other)
  Sender: FDA-Public Use
  Company Number: FR-JNJFOC-20101001156

PATIENT
  Age: 83 Year
  Sex: Female

DRUGS (2)
  1. TAVANIC [Suspect]
     Indication: BRONCHOPNEUMOPATHY
     Route: 065
  2. CEFTRIAXONE [Suspect]
     Indication: BRONCHOPNEUMOPATHY
     Route: 065

REACTIONS (8)
  - AREFLEXIA [None]
  - ARRHYTHMIA [None]
  - ATRIAL FIBRILLATION [None]
  - COMA [None]
  - HYPERAMMONAEMIA [None]
  - INAPPROPRIATE ANTIDIURETIC HORMONE SECRETION [None]
  - LOSS OF CONSCIOUSNESS [None]
  - MIOSIS [None]
